FAERS Safety Report 14687750 (Version 1)
Quarter: 2018Q1

REPORT INFORMATION
  Report Type: Spontaneous
  Country: US (occurrence: US)
  Receive Date: 20180328
  Receipt Date: 20180328
  Transmission Date: 20180509
  Serious: No
  Sender: FDA-Public Use
  Company Number: US-BIOGEN-2015BI034775

PATIENT
  Age: 56 Year
  Sex: Female

DRUGS (1)
  1. PLEGRIDY [Suspect]
     Active Substance: PEGINTERFERON BETA-1A
     Indication: MULTIPLE SCLEROSIS
     Route: 065
     Dates: start: 20150222

REACTIONS (8)
  - Depression [Unknown]
  - Injection site erythema [Unknown]
  - Injection site warmth [Recovered/Resolved]
  - Device malfunction [Unknown]
  - Injection site bruising [Not Recovered/Not Resolved]
  - Injection site induration [Unknown]
  - Drug dose omission [Unknown]
  - Injection site swelling [Recovered/Resolved]

NARRATIVE: CASE EVENT DATE: 20150222
